FAERS Safety Report 24936148 (Version 1)
Quarter: 2025Q1

REPORT INFORMATION
  Report Type: Report from Study
  Country: US (occurrence: US)
  Receive Date: 20250206
  Receipt Date: 20250206
  Transmission Date: 20250408
  Serious: Yes (Death, Hospitalization)
  Sender: EXELIXIS
  Company Number: US-EXELIXIS-EXL-2024-001717

PATIENT
  Age: 32 Year
  Sex: Female

DRUGS (2)
  1. CABOMETYX [Suspect]
     Active Substance: CABOZANTINIB S-MALATE
     Indication: Malignant melanoma
     Dates: start: 20240604
  2. KISQALI [Suspect]
     Active Substance: RIBOCICLIB
     Indication: Malignant melanoma

REACTIONS (4)
  - Malignant neoplasm progression [Fatal]
  - Inappropriate schedule of product administration [Unknown]
  - Product prescribing issue [Unknown]
  - Off label use [Unknown]

NARRATIVE: CASE EVENT DATE: 20240604
